FAERS Safety Report 8787886 (Version 2)
Quarter: 2015Q1

REPORT INFORMATION
  Report Type: Report from Study
  Country: US (occurrence: US)
  Receive Date: 20120914
  Receipt Date: 20150304
  Transmission Date: 20150721
  Serious: Yes (Death)
  Sender: FDA-Public Use
  Company Number: US-ROCHE-1126764

PATIENT
  Sex: Male

DRUGS (33)
  1. CYANOCOBALAMIN. [Concomitant]
     Active Substance: CYANOCOBALAMIN
     Dosage: 1000 MCG/ML
     Route: 042
  2. BARIUM SULPHATE [Concomitant]
     Active Substance: BARIUM SULFATE
     Route: 065
  3. NEOMYCIN [Concomitant]
     Active Substance: NEOMYCIN
  4. MEPERIDINE [Concomitant]
     Active Substance: MEPERIDINE
     Route: 065
  5. MIRALAX [Suspect]
     Active Substance: POLYETHYLENE GLYCOL 3350
     Indication: CONSTIPATION
     Route: 065
  6. COMPAZINE [Concomitant]
     Active Substance: PROCHLORPERAZINE MALEATE
     Route: 048
  7. MEDROL [Concomitant]
     Active Substance: METHYLPREDNISOLONE
     Route: 048
  8. ANTIVERT (UNITED STATES) [Concomitant]
  9. ALIMTA [Concomitant]
     Active Substance: PEMETREXED DISODIUM
     Route: 048
  10. FOLIC ACID. [Concomitant]
     Active Substance: FOLIC ACID
     Route: 048
  11. ZOFRAN [Suspect]
     Active Substance: ONDANSETRON HYDROCHLORIDE
     Indication: PRODUCT USED FOR UNKNOWN INDICATION
     Route: 065
  12. AMBIEN [Concomitant]
     Active Substance: ZOLPIDEM TARTRATE
     Dosage: AT BED TIME
     Route: 048
  13. PERCOCET [Concomitant]
     Active Substance: ACETAMINOPHEN\OXYCODONE HYDROCHLORIDE
     Dosage: 5MG-325MG
     Route: 048
  14. IBUPROFEN. [Concomitant]
     Active Substance: IBUPROFEN
     Route: 065
  15. NEUPOGEN [Concomitant]
     Active Substance: FILGRASTIM
     Dosage: 480 MCG /0.8ML
     Route: 065
  16. ALOXI [Concomitant]
     Active Substance: PALONOSETRON HYDROCHLORIDE
     Route: 042
  17. DECADRON [Concomitant]
     Active Substance: DEXAMETHASONE
     Route: 042
  18. BARIUM SULPHATE [Concomitant]
     Active Substance: BARIUM SULFATE
     Route: 065
  19. POLYMYXIN [Concomitant]
     Active Substance: POLYMYXIN
  20. ATIVAN [Concomitant]
     Active Substance: LORAZEPAM
     Dosage: AT BED TIME
     Route: 048
  21. DEXAMETHASONE. [Concomitant]
     Active Substance: DEXAMETHASONE
     Dosage: TAKE 5 TABLETS BEFORE CHEMOTHERAPY
     Route: 048
  22. HYCODAN (UNITED STATES) [Concomitant]
     Dosage: 5MG-1.5 MG/5 ML
     Route: 048
  23. ONDANSETRON [Concomitant]
     Active Substance: ONDANSETRON
     Route: 048
  24. HYCODAN (UNITED STATES) [Concomitant]
     Route: 048
  25. VICODIN [Concomitant]
     Active Substance: ACETAMINOPHEN\HYDROCODONE BITARTRATE
     Indication: COUGH
  26. OXYCONTIN [Concomitant]
     Active Substance: OXYCODONE HYDROCHLORIDE
     Route: 048
  27. GEMZAR [Concomitant]
     Active Substance: GEMCITABINE HYDROCHLORIDE
  28. AVASTIN [Suspect]
     Active Substance: BEVACIZUMAB
     Indication: LUNG NEOPLASM MALIGNANT
     Route: 042
  29. ZITHROMAX [Concomitant]
     Active Substance: AZITHROMYCIN DIHYDRATE
     Indication: BRONCHITIS
  30. ZITHROMAX [Concomitant]
     Active Substance: AZITHROMYCIN DIHYDRATE
     Route: 048
  31. MECLIZINE [Concomitant]
     Active Substance: MECLIZINE\MECLIZINE HYDROCHLORIDE
     Indication: DIZZINESS
     Route: 065
  32. CISPLATIN. [Concomitant]
     Active Substance: CISPLATIN
  33. DOCETAXEL. [Concomitant]
     Active Substance: DOCETAXEL

REACTIONS (17)
  - Neutropenia [Unknown]
  - Discomfort [Unknown]
  - Arthralgia [Unknown]
  - Atelectasis [Unknown]
  - Rhonchi [Unknown]
  - Gait disturbance [Unknown]
  - Death [Fatal]
  - Bone pain [Unknown]
  - Drug dose omission [Unknown]
  - Pallor [Unknown]
  - Fatigue [Unknown]
  - Hyperhidrosis [Unknown]
  - Diarrhoea [Unknown]
  - Musculoskeletal pain [Unknown]
  - Increased bronchial secretion [Unknown]
  - Asthenia [Unknown]
  - Constipation [Unknown]
